FAERS Safety Report 7791068-3 (Version None)
Quarter: 2011Q4

REPORT INFORMATION
  Report Type: 
  Country: None (occurrence: None)
  Receive Date: 20111003
  Receipt Date: 20110923
  Transmission Date: 20120403
  Serious: Yes (Hospitalization)
  Sender: FDA-Public Use
  Company Number: US-BIOGENIDEC-2011BI036602

PATIENT
  Age: 57 Year
  Sex: Female

DRUGS (3)
  1. AVONEX [Suspect]
     Indication: MULTIPLE SCLEROSIS
     Route: 030
     Dates: start: 20090109
  2. AVONEX [Suspect]
     Route: 030
     Dates: start: 19990701
  3. AVONEX [Suspect]
     Route: 030
     Dates: start: 20070808, end: 20071001

REACTIONS (2)
  - ANGINA PECTORIS [None]
  - MULTIPLE SCLEROSIS RELAPSE [None]
